FAERS Safety Report 21763272 (Version 1)
Quarter: 2022Q4

REPORT INFORMATION
  Report Type: Report from Study
  Country: US (occurrence: US)
  Receive Date: 20221221
  Receipt Date: 20221221
  Transmission Date: 20230112
  Serious: Yes (Hospitalization)
  Sender: FDA-Public Use
  Company Number: US-SEATTLE GENETICS-2022SGN11693

PATIENT
  Sex: Female
  Weight: 39.9 kg

DRUGS (2)
  1. TUCATINIB [Suspect]
     Active Substance: TUCATINIB
     Indication: HER2 positive breast cancer
     Dosage: UNK UNK, BID
     Route: 048
     Dates: start: 20200227
  2. ADO-TRASTUZUMAB EMTANSINE [Suspect]
     Active Substance: ADO-TRASTUZUMAB EMTANSINE
     Indication: HER2 positive breast cancer
     Dosage: UNK UNK, Q3WEEKS
     Route: 042
     Dates: start: 20200227

REACTIONS (1)
  - Urosepsis [Not Recovered/Not Resolved]
